FAERS Safety Report 6233049-7 (Version None)
Quarter: 2009Q2

REPORT INFORMATION
  Report Type: 
  Country: None (occurrence: None)
  Receive Date: 20090616
  Receipt Date: 20090616
  Transmission Date: 20091009
  Serious: No
  Sender: FDA-Public Use
  Company Number: None

PATIENT
  Age: 61 Year
  Sex: Male
  Weight: 53.23 kg

DRUGS (2)
  1. PACLITAXEL [Suspect]
     Dosage: 326 MG ONCE IV
     Route: 042
     Dates: start: 20090305, end: 20090306
  2. CARBOPLATIN [Suspect]
     Dosage: 600 MG ONCE IV
     Route: 042
     Dates: start: 20090305, end: 20090305

REACTIONS (2)
  - NAUSEA [None]
  - VOMITING [None]
